FAERS Safety Report 19414006 (Version 1)
Quarter: 2021Q2

REPORT INFORMATION
  Report Type: Spontaneous
  Country: AT (occurrence: AT)
  Receive Date: 20210615
  Receipt Date: 20210615
  Transmission Date: 20210717
  Serious: Yes (Other)
  Sender: FDA-Public Use
  Company Number: AT-AMGEN-AUTSP2021090044

PATIENT
  Age: 27 Year
  Sex: Female

DRUGS (2)
  1. AMGEVITA [Suspect]
     Active Substance: ADALIMUMAB
     Dosage: 40 MILLIGRAM, QWK
     Route: 058
  2. AMGEVITA [Suspect]
     Active Substance: ADALIMUMAB
     Indication: PRODUCT USED FOR UNKNOWN INDICATION
     Dosage: 40 MILLIGRAM, QWK
     Route: 058
     Dates: start: 2017

REACTIONS (1)
  - Crohn^s disease [Recovered/Resolved]

NARRATIVE: CASE EVENT DATE: 2018
